FAERS Safety Report 17076784 (Version 1)
Quarter: 2019Q4

REPORT INFORMATION
  Report Type: Spontaneous
  Country: PL (occurrence: PL)
  Receive Date: 20191126
  Receipt Date: 20191126
  Transmission Date: 20200122
  Serious: Yes (Hospitalization)
  Sender: FDA-Public Use
  Company Number: PL-BAUSCH-BL-2019-062710

PATIENT
  Age: 66 Year
  Sex: Female

DRUGS (4)
  1. GLIMEPIRIDE. [Suspect]
     Active Substance: GLIMEPIRIDE
     Indication: PRODUCT USED FOR UNKNOWN INDICATION
     Route: 065
  2. INSULIN [Suspect]
     Active Substance: INSULIN NOS
     Indication: PRODUCT USED FOR UNKNOWN INDICATION
     Dosage: 6 UL (BEFORE DINNER)
     Route: 042
  3. INSULIN [Suspect]
     Active Substance: INSULIN NOS
     Dosage: 10 UL (BEFORE BREAKFAST)
     Route: 042
  4. METFORMIN [Suspect]
     Active Substance: METFORMIN HYDROCHLORIDE
     Indication: PRODUCT USED FOR UNKNOWN INDICATION
     Route: 048

REACTIONS (2)
  - Hyperglycaemia [Recovered/Resolved]
  - Glycosylated haemoglobin abnormal [Recovered/Resolved]
